FAERS Safety Report 6306787-5 (Version None)
Quarter: 2009Q3

REPORT INFORMATION
  Report Type: 
  Country: None (occurrence: None)
  Receive Date: 20090811
  Receipt Date: 20090811
  Transmission Date: 20100115
  Serious: No
  Sender: FDA-Public Use
  Company Number: None

PATIENT
  Age: 65 Year
  Sex: Female
  Weight: 64.4108 kg

DRUGS (1)
  1. LEVAQUIN [Suspect]
     Indication: CELLULITIS
     Dosage: 1 TAB DAILY PO
     Route: 048
     Dates: start: 20090807, end: 20090808

REACTIONS (1)
  - NIGHTMARE [None]
